FAERS Safety Report 11337548 (Version 1)
Quarter: 2015Q3

REPORT INFORMATION
  Report Type: Spontaneous
  Country: US (occurrence: US)
  Receive Date: 20150803
  Receipt Date: 20150803
  Transmission Date: 20151125
  Serious: No
  Sender: FDA-Public Use
  Company Number: US-ELI_LILLY_AND_COMPANY-US200908003772

PATIENT
  Age: 59 Year
  Sex: Male

DRUGS (4)
  1. EFFEXOR [Concomitant]
     Active Substance: VENLAFAXINE HYDROCHLORIDE
  2. REMERON [Concomitant]
     Active Substance: MIRTAZAPINE
  3. ZYPREXA [Suspect]
     Active Substance: OLANZAPINE
     Indication: BIPOLAR DISORDER
     Dosage: 20 MG, DAILY (1/D)
     Dates: start: 200902, end: 20090815
  4. LITHIUM. [Concomitant]
     Active Substance: LITHIUM

REACTIONS (2)
  - Speech disorder [Recovered/Resolved]
  - Tongue disorder [Recovered/Resolved]

NARRATIVE: CASE EVENT DATE: 200906
